FAERS Safety Report 7945773-6 (Version None)
Quarter: 2011Q4

REPORT INFORMATION
  Report Type: 
  Country: None (occurrence: None)
  Receive Date: 20111129
  Receipt Date: 20111122
  Transmission Date: 20120403
  Serious: Yes (Hospitalization)
  Sender: FDA-Public Use
  Company Number: GB-ROCHE-1009764

PATIENT
  Sex: Male
  Weight: 72 kg

DRUGS (5)
  1. RISEDRONATE SODIUM [Concomitant]
  2. ASPIRIN [Concomitant]
     Route: 048
  3. BISOPROLOL FUMARATE [Concomitant]
     Route: 048
  4. LANSOPRAZOLE [Concomitant]
  5. RITUXIMAB [Suspect]
     Indication: RHEUMATOID ARTHRITIS
     Route: 042
     Dates: start: 20091101

REACTIONS (2)
  - CHEST PAIN [None]
  - COLD SWEAT [None]
